FAERS Safety Report 7824447-6 (Version None)
Quarter: 2011Q4

REPORT INFORMATION
  Report Type: 
  Country: None (occurrence: None)
  Receive Date: 20111019
  Receipt Date: 20111015
  Transmission Date: 20120403
  Serious: No
  Sender: FDA-Public Use
  Company Number: KR-ELI_LILLY_AND_COMPANY-KR201110004279

PATIENT
  Age: 67 Year
  Sex: Male

DRUGS (2)
  1. ANTIHYPERTENSIVES [Concomitant]
  2. CIALIS [Suspect]
     Dosage: 20 MG, PRN
     Route: 048

REACTIONS (1)
  - INTRAOCULAR PRESSURE INCREASED [None]
